FAERS Safety Report 15252634 (Version 1)
Quarter: 2018Q3

REPORT INFORMATION
  Report Type: Spontaneous
  Country: US (occurrence: US)
  Receive Date: 20180807
  Receipt Date: 20180807
  Transmission Date: 20181010
  Serious: No
  Sender: FDA-Public Use
  Company Number: US-RADIUS HEALTH INC.-2018US001007

PATIENT
  Age: 65 Year
  Sex: Female

DRUGS (1)
  1. TYMLOS [Suspect]
     Active Substance: ABALOPARATIDE
     Indication: OSTEOPOROSIS POSTMENOPAUSAL
     Dosage: 80 MCG., ONCE A DAY
     Route: 058
     Dates: start: 201805, end: 201805

REACTIONS (7)
  - Dizziness [Unknown]
  - Nausea [Unknown]
  - Heart rate increased [Unknown]
  - Fatigue [Unknown]
  - Vertigo [Unknown]
  - Abdominal pain upper [Unknown]
  - Headache [Unknown]
